FAERS Safety Report 15858241 (Version 1)
Quarter: 2019Q1

REPORT INFORMATION
  Report Type: Spontaneous
  Country: IT (occurrence: IT)
  Receive Date: 20190123
  Receipt Date: 20190123
  Transmission Date: 20190417
  Serious: Yes (Death)
  Sender: FDA-Public Use
  Company Number: IT-MYLANLABS-2019M1005249

PATIENT
  Age: 74 Year
  Sex: Female

DRUGS (2)
  1. TRETINOIN. [Suspect]
     Active Substance: TRETINOIN
     Indication: LEUKAEMIA RECURRENT
     Dosage: UNK
  2. ARSENIC TRIOXIDE. [Suspect]
     Active Substance: ARSENIC TRIOXIDE
     Indication: LEUKAEMIA RECURRENT
     Dosage: UNK

REACTIONS (1)
  - Death [Fatal]
